APPROVED DRUG PRODUCT: TELMISARTAN AND AMLODIPINE
Active Ingredient: AMLODIPINE BESYLATE; TELMISARTAN
Strength: EQ 5MG BASE;80MG
Dosage Form/Route: TABLET;ORAL
Application: A205234 | Product #003
Applicant: ALEMBIC PHARMACEUTICALS LTD
Approved: Nov 17, 2016 | RLD: No | RS: No | Type: DISCN